FAERS Safety Report 8565120-9 (Version None)
Quarter: 2012Q3

REPORT INFORMATION
  Report Type: 
  Country: None (occurrence: None)
  Receive Date: 20120803
  Receipt Date: 20120730
  Transmission Date: 20120928
  Serious: Yes (Other)
  Sender: FDA-Public Use
  Company Number: US-PFIZER INC-2012141406

PATIENT
  Age: 72 Year
  Sex: Female
  Weight: 68.027 kg

DRUGS (9)
  1. AREDIA [Concomitant]
     Dosage: UNK
  2. ZETIA [Concomitant]
     Dosage: 10 MG, UNK
  3. ACEROLA [Concomitant]
     Dosage: UNK
  4. CALCIJEX [Concomitant]
     Dosage: UNK
  5. ZOCOR [Concomitant]
     Dosage: UNK
  6. SPIRONOLACTONE [Concomitant]
     Dosage: UNK
  7. LYRICA [Suspect]
     Indication: FIBROMYALGIA
     Dosage: 50 MG, 2X/DAY
     Route: 048
  8. NORVASC [Concomitant]
     Dosage: UNK
  9. METOPROLOL SUCCINATE [Concomitant]
     Dosage: 50 MG, UNK

REACTIONS (11)
  - DEPRESSION [None]
  - DIZZINESS [None]
  - AMNESIA [None]
  - MOOD ALTERED [None]
  - WEIGHT DECREASED [None]
  - DISTURBANCE IN ATTENTION [None]
  - VISION BLURRED [None]
  - INSOMNIA [None]
  - WEIGHT INCREASED [None]
  - FLUID RETENTION [None]
  - NERVOUS SYSTEM DISORDER [None]
